FAERS Safety Report 14378082 (Version 2)
Quarter: 2018Q1

REPORT INFORMATION
  Report Type: Spontaneous
  Country: FR (occurrence: FR)
  Receive Date: 20180111
  Receipt Date: 20180202
  Transmission Date: 20180509
  Serious: Yes (Hospitalization)
  Sender: FDA-Public Use
  Company Number: FR-PFIZER INC-2018008871

PATIENT
  Age: 68 Year
  Sex: Female

DRUGS (11)
  1. DIFFU K [Concomitant]
     Active Substance: POTASSIUM CHLORIDE
     Dosage: UNK
  2. GENTALLINE UNILABO [Suspect]
     Active Substance: GENTAMICIN SULFATE
     Indication: GASTROINTESTINAL INFECTION
     Dosage: 120 MG, 1X/DAY
     Route: 042
     Dates: start: 20170823
  3. AZITHROMYCIN ANHYDROUS. [Suspect]
     Active Substance: AZITHROMYCIN ANHYDROUS
     Indication: GASTROINTESTINAL INFECTION
     Dosage: UNK
     Route: 048
     Dates: start: 20170831
  4. TRACLEER [Concomitant]
     Active Substance: BOSENTAN
     Dosage: UNK
     Route: 048
  5. FORMOTEROL [Concomitant]
     Active Substance: FORMOTEROL
     Dosage: UNK
     Route: 055
  6. PREDNISONE. [Concomitant]
     Active Substance: PREDNISONE
     Dosage: UNK
  7. INEXIUM [Concomitant]
     Active Substance: ESOMEPRAZOLE
     Dosage: UNK
     Route: 048
  8. CELESTAMINE [Suspect]
     Active Substance: BETAMETHASONE\DEXCHLORPHENIRAMINE MALEATE
     Indication: PRURITUS
     Dosage: UNK
     Route: 048
     Dates: start: 20171125
  9. ATOVAQUONE. [Concomitant]
     Active Substance: ATOVAQUONE
     Dosage: UNK
  10. FUROSEMIDE. [Concomitant]
     Active Substance: FUROSEMIDE
     Dosage: UNK
  11. TAMOXIFENE [Concomitant]
     Active Substance: TAMOXIFEN
     Dosage: UNK
     Route: 048

REACTIONS (3)
  - Rash macular [Recovering/Resolving]
  - Pruritus [Recovering/Resolving]
  - Erythema [Recovering/Resolving]

NARRATIVE: CASE EVENT DATE: 20171130
